FAERS Safety Report 5567858-4 (Version None)
Quarter: 2007Q4

REPORT INFORMATION
  Report Type: 
  Country: None (occurrence: None)
  Receive Date: 20071217
  Receipt Date: 20071205
  Transmission Date: 20080405
  Serious: Yes (Hospitalization, Other)
  Sender: FDA-Public Use
  Company Number: 2007BI002400

PATIENT
  Age: 38 Year
  Sex: Female
  Weight: 93.441 kg

DRUGS (1)
  1. AVONEX [Suspect]
     Indication: MULTIPLE SCLEROSIS
     Dosage: 30 UG; QW; IM
     Route: 030
     Dates: start: 20000907, end: 20060801

REACTIONS (13)
  - ANTINUCLEAR ANTIBODY POSITIVE [None]
  - ANTIPHOSPHOLIPID SYNDROME [None]
  - APHONIA [None]
  - AUTOIMMUNE HEPATITIS [None]
  - CEREBROVASCULAR ACCIDENT [None]
  - CONDITION AGGRAVATED [None]
  - FITZ-HUGH-CURTIS SYNDROME [None]
  - HEPATIC STEATOSIS [None]
  - HYPOAESTHESIA FACIAL [None]
  - MIGRAINE [None]
  - MULTIPLE SCLEROSIS [None]
  - POLYGLANDULAR DISORDER [None]
  - TRANSIENT ISCHAEMIC ATTACK [None]
